FAERS Safety Report 14103243 (Version 2)
Quarter: 2017Q4

REPORT INFORMATION
  Report Type: Spontaneous
  Country: IT (occurrence: IT)
  Receive Date: 20171018
  Receipt Date: 20171221
  Transmission Date: 20180321
  Serious: Yes (Hospitalization)
  Sender: FDA-Public Use
  Company Number: IT-PFIZER INC-2017444556

PATIENT
  Age: 5 Month
  Sex: Female
  Weight: 6 kg

DRUGS (9)
  1. ANTRA [Concomitant]
     Active Substance: OMEPRAZOLE
     Dosage: 6 MG, UNK
  2. TRIMETON [Concomitant]
     Active Substance: CHLORPHENIRAMINE MALEATE
     Dosage: 2 MG, UNK
  3. SIMETHICONE (DIMETHICONE) [Concomitant]
     Active Substance: DIMETHICONE
     Dosage: 40 GTT, UNK
     Route: 048
  4. CARBOPLATIN. [Suspect]
     Active Substance: CARBOPLATIN
     Indication: BRAIN NEOPLASM MALIGNANT
     Dosage: 118.3 MG, CYCLIC
     Route: 042
     Dates: start: 20160406
  5. NORMASE EPS [Concomitant]
     Dosage: 4 ML, UNK
     Route: 048
  6. ZOFRAN [Concomitant]
     Active Substance: ONDANSETRON HYDROCHLORIDE
     Dosage: 4.5 MG, UNK
  7. LIDOFAST [Concomitant]
     Indication: ANAL FISSURE
     Dosage: UNK
  8. VINCRISTINE SULFATE. [Suspect]
     Active Substance: VINCRISTINE SULFATE
     Indication: BRAIN NEOPLASM MALIGNANT
     Dosage: 0.32 MG, CYCLIC
     Route: 042
     Dates: start: 20160406
  9. ULTRAPROCT [Concomitant]
     Indication: ANAL FISSURE
     Dosage: UNK

REACTIONS (3)
  - Erythema [Recovering/Resolving]
  - Anaemia [Recovering/Resolving]
  - Tympanic membrane hyperaemia [Recovering/Resolving]

NARRATIVE: CASE EVENT DATE: 20160411
